FAERS Safety Report 18131952 (Version 3)
Quarter: 2020Q3

REPORT INFORMATION
  Report Type: Spontaneous
  Country: CO (occurrence: CO)
  Receive Date: 20200810
  Receipt Date: 20200923
  Transmission Date: 20201103
  Serious: Yes (Hospitalization, Other)
  Sender: FDA-Public Use
  Company Number: CO-ROCHE-2652943

PATIENT
  Age: 67 Year
  Sex: Male
  Weight: 94 kg

DRUGS (20)
  1. PROGRAF [Suspect]
     Active Substance: TACROLIMUS
     Route: 065
  2. ACETYLSALICYLIC ACID [Concomitant]
     Active Substance: ASPIRIN
     Indication: RENAL TRANSPLANT
     Route: 048
  3. ATORVASTATIN [Concomitant]
     Active Substance: ATORVASTATIN
     Indication: RENAL TRANSPLANT
     Route: 048
  4. CYCLOSPORINE. [Concomitant]
     Active Substance: CYCLOSPORINE
     Route: 065
  5. PROGRAF [Suspect]
     Active Substance: TACROLIMUS
     Route: 048
     Dates: start: 20190319
  6. DILATREND [Suspect]
     Active Substance: CARVEDILOL
     Indication: RENAL TRANSPLANT
     Dosage: 2 TABLETS OF 6.25MG, ONCE DAILY
     Route: 048
  7. AMIODARONE [Suspect]
     Active Substance: AMIODARONE
     Indication: PRODUCT USED FOR UNKNOWN INDICATION
     Route: 065
  8. PROGRAF [Suspect]
     Active Substance: TACROLIMUS
     Dosage: 6 MG (5 MG AND 1 MG CAPSULES), ONCE DAILY
     Route: 048
     Dates: start: 202003
  9. ALUMINUM HYDROXIDE. [Concomitant]
     Active Substance: ALUMINUM HYDROXIDE
     Indication: RENAL TRANSPLANT
     Dosage: 3 TABLESPOONS (6%) ONCE DAILY
     Route: 048
  10. CALCIUM CARBONATE. [Concomitant]
     Active Substance: CALCIUM CARBONATE
     Indication: RENAL TRANSPLANT
     Dosage: 600/200 UNITS
     Route: 048
  11. COLECALCIFEROL [Concomitant]
     Active Substance: CHOLECALCIFEROL
  12. PREDNISOLONE. [Suspect]
     Active Substance: PREDNISOLONE
     Indication: RENAL TRANSPLANT
     Route: 048
     Dates: start: 20060319
  13. PROGRAF [Suspect]
     Active Substance: TACROLIMUS
     Indication: RENAL TRANSPLANT
     Dosage: 6 MG (5 MG AND 1 MG CAPSULES), ONCE DAILY
     Route: 048
     Dates: start: 20060319
  14. PROGRAF [Suspect]
     Active Substance: TACROLIMUS
     Route: 048
     Dates: start: 20190319
  15. OMEPRAZOLE. [Concomitant]
     Active Substance: OMEPRAZOLE
     Route: 048
  16. MYCOPHENOLATE MOFETIL. [Suspect]
     Active Substance: MYCOPHENOLATE MOFETIL
     Indication: RENAL TRANSPLANT
     Route: 048
  17. MYCOPHENOLATE MOFETIL. [Suspect]
     Active Substance: MYCOPHENOLATE MOFETIL
     Route: 048
  18. PROGRAF [Suspect]
     Active Substance: TACROLIMUS
     Route: 065
  19. PROGRAF [Suspect]
     Active Substance: TACROLIMUS
     Dosage: 6 MG, ONCE DAILY (1 CAPSULE OF 3 MG AND 3 CAPSULES OF 1 MG)
     Route: 048
     Dates: start: 20060319
  20. PROGRAF [Suspect]
     Active Substance: TACROLIMUS
     Dosage: (6 CAPSULES OF 1 MG) PHARMACY GAVE PROGRAF X 5 MG AND 1 MG
     Route: 048

REACTIONS (16)
  - Renal failure [Unknown]
  - Osteopenia [Not Recovered/Not Resolved]
  - Infarction [Recovered/Resolved]
  - Chronic gastritis [Not Recovered/Not Resolved]
  - Gastritis [Not Recovered/Not Resolved]
  - Blood calcium decreased [Unknown]
  - Insomnia [Unknown]
  - Renal transplant failure [Unknown]
  - Dyspepsia [Not Recovered/Not Resolved]
  - Infarction [Recovered/Resolved]
  - Product use in unapproved indication [Unknown]
  - Off label use [Unknown]
  - Myocardial infarction [Recovered/Resolved]
  - Myocardial infarction [Unknown]
  - Bone pain [Unknown]
  - Arrhythmia [Recovered/Resolved]

NARRATIVE: CASE EVENT DATE: 201608
